FAERS Safety Report 20345627 (Version 2)
Quarter: 2022Q1

REPORT INFORMATION
  Report Type: Report from Study
  Country: US (occurrence: US)
  Receive Date: 20220118
  Receipt Date: 20220126
  Transmission Date: 20220423
  Serious: Yes (Other)
  Sender: FDA-Public Use
  Company Number: US-BAYER-2022A002369

PATIENT
  Sex: Female
  Weight: 89.796 kg

DRUGS (3)
  1. ADEMPAS [Suspect]
     Active Substance: RIOCIGUAT
     Indication: Pulmonary arterial hypertension
     Dosage: UNK
     Dates: start: 20211115
  2. ADEMPAS [Suspect]
     Active Substance: RIOCIGUAT
     Indication: Pulmonary arterial hypertension
     Dosage: 2 MG, TID
     Route: 048
  3. ADEMPAS [Suspect]
     Active Substance: RIOCIGUAT
     Indication: Pulmonary arterial hypertension
     Dosage: 1.5 MG, TID
     Route: 048
     Dates: end: 20220112

REACTIONS (18)
  - Traumatic fracture [None]
  - Head injury [None]
  - Somnolence [None]
  - Anxiety [None]
  - Irritability [None]
  - Dyspnoea exertional [Not Recovered/Not Resolved]
  - Insomnia [None]
  - Suffocation feeling [None]
  - Fatigue [None]
  - Depression [None]
  - Feeling of despair [None]
  - Overweight [None]
  - Fluid retention [None]
  - Peripheral swelling [None]
  - Fall [None]
  - Eye contusion [None]
  - Dyspnoea [None]
  - Cognitive disorder [Recovering/Resolving]
